FAERS Safety Report 11534190 (Version 1)
Quarter: 2015Q3

REPORT INFORMATION
  Report Type: Spontaneous
  Country: US (occurrence: US)
  Receive Date: 20150922
  Receipt Date: 20150922
  Transmission Date: 20151125
  Serious: No
  Sender: FDA-Public Use
  Company Number: US-ACCORD-032371

PATIENT
  Age: 32 Year
  Sex: Female

DRUGS (2)
  1. AMITRIPTYLINE ACCORD [Suspect]
     Active Substance: AMITRIPTYLINE
     Indication: SLEEP DISORDER
     Route: 048
     Dates: start: 201507
  2. BENTYL [Concomitant]
     Active Substance: DICYCLOMINE HYDROCHLORIDE

REACTIONS (5)
  - Constipation [Not Recovered/Not Resolved]
  - Mucous stools [Not Recovered/Not Resolved]
  - Off label use [Unknown]
  - Abdominal pain upper [Not Recovered/Not Resolved]
  - Feeling abnormal [Not Recovered/Not Resolved]

NARRATIVE: CASE EVENT DATE: 201507
